FAERS Safety Report 4429246-3 (Version None)
Quarter: 2004Q3

REPORT INFORMATION
  Report Type: 
  Country: None (occurrence: None)
  Receive Date: 20040819
  Receipt Date: 20040809
  Transmission Date: 20050211
  Serious: Yes (Other)
  Sender: FDA-Public Use
  Company Number: PHFR2004GB03127

PATIENT
  Age: 64 Year
  Sex: Male

DRUGS (1)
  1. GLEEVEC [Suspect]
     Indication: CHRONIC MYELOID LEUKAEMIA
     Dosage: 400MG/DAY
     Route: 048
     Dates: start: 20030612, end: 20040618

REACTIONS (4)
  - DECREASED APPETITE [None]
  - LICHEN PLANUS [None]
  - MOUTH ULCERATION [None]
  - WEIGHT DECREASED [None]
